FAERS Safety Report 16660772 (Version 4)
Quarter: 2019Q3

REPORT INFORMATION
  Report Type: Spontaneous
  Country: US (occurrence: US)
  Receive Date: 20190802
  Receipt Date: 20190826
  Transmission Date: 20191004
  Serious: Yes (Other)
  Sender: FDA-Public Use
  Company Number: US-PFIZER INC-2019328136

PATIENT
  Age: 29 Year
  Sex: Female

DRUGS (2)
  1. PROCAINE [Suspect]
     Active Substance: PROCAINE
     Indication: LOCAL ANAESTHESIA
     Dosage: UNK (25-30 CC OF 0.5% PROCAINE-EPINEPHRINE)
  2. EPINEPHRINE. [Suspect]
     Active Substance: EPINEPHRINE
     Indication: LOCAL ANAESTHESIA
     Dosage: UNK (INJECTION) (25-30 CC OF 0.5% PROCAINE-EPINEPHRINE)

REACTIONS (3)
  - Gangrene [Unknown]
  - Hypersensitivity [Unknown]
  - Extremity necrosis [Unknown]
